FAERS Safety Report 8906119 (Version 1)
Quarter: 2012Q4

REPORT INFORMATION
  Report Type: 
  Country: US (occurrence: US)
  Receive Date: 20121110
  Receipt Date: 20121110
  Transmission Date: 20130627
  Serious: No
  Sender: FDA-Public Use
  Company Number: US-009507513-1211USA002634

PATIENT
  Age: 20 Year
  Sex: Male

DRUGS (5)
  1. AZASITE [Suspect]
     Indication: CONJUNCTIVITIS
     Dosage: 2 drops for first 2 days and 1 drop for the following 3-7 days
     Route: 031
     Dates: start: 20121031
  2. AZASITE [Suspect]
     Dosage: UNK, Once
     Route: 031
     Dates: start: 20121101
  3. OMEPRAZOLE [Concomitant]
  4. DICYCLOMINE HYDROCHLORIDE [Concomitant]
  5. CITALOPRAM [Concomitant]

REACTIONS (2)
  - Eye swelling [Recovering/Resolving]
  - Expired drug administered [Unknown]
